FAERS Safety Report 5158787-9 (Version None)
Quarter: 2006Q4

REPORT INFORMATION
  Report Type: 
  Country: None (occurrence: None)
  Receive Date: 20061128
  Receipt Date: 20061114
  Transmission Date: 20070319
  Serious: Yes (Hospitalization)
  Sender: FDA-Public Use
  Company Number: DE-ELI_LILLY_AND_COMPANY-DE200611003498

PATIENT
  Age: 77 Year
  Sex: Female

DRUGS (3)
  1. FORTEO [Suspect]
     Indication: OSTEOPOROTIC FRACTURE
     Dosage: 20 UNK, DAILY (1/D)
     Route: 058
     Dates: start: 20050916, end: 20061114
  2. VITAMIN D [Concomitant]
     Dates: start: 20061101
  3. CALCIUM CARBONATE [Concomitant]
     Dates: start: 20011101

REACTIONS (2)
  - MALIGNANT MIDDLE EAR NEOPLASM [None]
  - NEOPLASM MALIGNANT [None]
